FAERS Safety Report 5202898-6 (Version None)
Quarter: 2006Q4

REPORT INFORMATION
  Report Type: 
  Country: None (occurrence: None)
  Receive Date: 20061016
  Receipt Date: 20060906
  Transmission Date: 20070319
  Serious: No
  Sender: FDA-Public Use
  Company Number: 2006SP003200

PATIENT
  Age: 45 Year
  Sex: Female
  Weight: 120.2032 kg

DRUGS (10)
  1. LUNESTA [Suspect]
     Indication: INSOMNIA
     Dosage: 3 MG;HS; ORAL
     Route: 048
     Dates: start: 20050101
  2. RITALIN [Concomitant]
  3. LEXAPRO [Concomitant]
  4. LORPESSOR [Concomitant]
  5. ASPIRIN [Concomitant]
  6. DEPO-PROVERA [Concomitant]
  7. DIPHENHYDRAMINE HCL [Concomitant]
  8. FLEXERIL [Concomitant]
  9. AMBIEN [Concomitant]
  10. ACETAMINOPHEN W/PROPOXYPHENE [Concomitant]

REACTIONS (1)
  - INITIAL INSOMNIA [None]
